FAERS Safety Report 17000549 (Version 1)
Quarter: 2019Q4

REPORT INFORMATION
  Report Type: Spontaneous
  Country: US (occurrence: US)
  Receive Date: 20191106
  Receipt Date: 20191106
  Transmission Date: 20200122
  Serious: Yes (Other)
  Sender: FDA-Public Use
  Company Number: US-IPSEN BIOPHARMACEUTICALS, INC.-2019-20109

PATIENT
  Age: 38 Year
  Sex: Male

DRUGS (2)
  1. DYSPORT [Suspect]
     Active Substance: ABOBOTULINUMTOXINA
     Indication: SKIN WRINKLING
     Dosage: 50 UNITS
     Route: 065
     Dates: start: 20191028, end: 20191028
  2. LIDOCAINE. [Concomitant]
     Active Substance: LIDOCAINE
     Indication: CYST REMOVAL

REACTIONS (3)
  - Tinnitus [Not Recovered/Not Resolved]
  - Incorrect product administration duration [Unknown]
  - Deafness unilateral [Not Recovered/Not Resolved]

NARRATIVE: CASE EVENT DATE: 201910
